FAERS Safety Report 8920659 (Version 1)
Quarter: 2012Q4

REPORT INFORMATION
  Report Type: 
  Country: US (occurrence: US)
  Receive Date: 20121122
  Receipt Date: 20121122
  Transmission Date: 20130627
  Serious: Yes (Hospitalization)
  Sender: FDA-Public Use
  Company Number: US-B.I. PHARMACEUTICALS,INC./RIDGEFIELD-2012-BI-00565BP

PATIENT
  Sex: Male
  Weight: 90 kg

DRUGS (16)
  1. PRADAXA [Suspect]
     Indication: CEREBROVASCULAR ACCIDENT PROPHYLAXIS
     Dosage: 300 mg
     Route: 048
     Dates: start: 201205, end: 201207
  2. PRADAXA [Suspect]
     Indication: ATRIAL FIBRILLATION
  3. FLOMAX CAPSULES [Suspect]
     Indication: BLADDER DISORDER
     Dosage: 0.4 mg
     Route: 048
  4. LEVOTHYROXINE [Concomitant]
     Dosage: 112 mcg
     Route: 048
  5. LISINOPRIL [Concomitant]
     Indication: HYPERTENSION
     Dosage: 5 mg
     Route: 048
  6. FISH OIL [Concomitant]
     Dosage: 1000 mg
     Route: 048
  7. JANUVIA [Concomitant]
     Indication: BLOOD GLUCOSE ABNORMAL
     Dosage: 50 mg
     Route: 048
  8. NITROLINGUAL SPRAY [Concomitant]
     Indication: CHEST PAIN
  9. CLARITIN [Concomitant]
     Indication: HYPERSENSITIVITY
     Dosage: 10 mg
     Route: 048
  10. CRESTOR [Concomitant]
     Dosage: 10 mg
     Route: 048
  11. PRO AIR HFA [Concomitant]
     Indication: ASTHMA
     Route: 055
  12. VITAMIN D [Concomitant]
     Dosage: 2000 RT
     Route: 048
  13. FLONASE NASAL SPRAY [Concomitant]
     Indication: HYPERSENSITIVITY
     Dosage: 200 mcg
     Route: 045
  14. B 12 [Concomitant]
     Dosage: 2000 mcg
     Route: 048
  15. CALCIUM [Concomitant]
     Dosage: 800 mg
     Route: 048
  16. CENTRUM SILVER DAILY VITAMIN [Concomitant]
     Route: 048

REACTIONS (3)
  - Haemoptysis [Recovered/Resolved]
  - Asthma [Recovered/Resolved]
  - Mallory-Weiss syndrome [Recovered/Resolved]
